FAERS Safety Report 10292480 (Version 7)
Quarter: 2015Q2

REPORT INFORMATION
  Report Type: Spontaneous
  Country: US (occurrence: US)
  Receive Date: 20140710
  Receipt Date: 20150429
  Transmission Date: 20150821
  Serious: Yes (Hospitalization, Other)
  Sender: FDA-Public Use
  Company Number: US-009507513-1407USA002918

PATIENT
  Sex: Female
  Weight: 90.7 kg

DRUGS (4)
  1. FOSAMAX [Suspect]
     Active Substance: ALENDRONATE SODIUM
     Dosage: UNK
     Route: 048
     Dates: start: 1998
  2. ALENDRONATE SODIUM. [Suspect]
     Active Substance: ALENDRONATE SODIUM
     Indication: OSTEOPOROSIS
     Dosage: 70 MG, QW
     Route: 048
     Dates: start: 20080303, end: 201311
  3. FOSAMAX [Suspect]
     Active Substance: ALENDRONATE SODIUM
     Indication: OSTEOPOROSIS
     Dosage: 70 MG, QW
     Route: 048
     Dates: start: 20020909
  4. FOSAMAX [Suspect]
     Active Substance: ALENDRONATE SODIUM
     Dosage: 10 MG, QD
     Route: 048
     Dates: start: 1997

REACTIONS (20)
  - Eye operation [Unknown]
  - Plantar fasciitis [Unknown]
  - Femur fracture [Unknown]
  - Vitamin D deficiency [Unknown]
  - Cataract [Unknown]
  - Leukocytosis [Unknown]
  - Scoliosis [Unknown]
  - Back pain [Unknown]
  - Viral infection [Unknown]
  - Calcium deficiency [Unknown]
  - Blood cholesterol increased [Unknown]
  - Anaemia postoperative [Recovering/Resolving]
  - Transient ischaemic attack [Unknown]
  - Acrochordon [Unknown]
  - Skin papilloma [Unknown]
  - Laceration [Unknown]
  - Eye disorder [Unknown]
  - Ankle fracture [Unknown]
  - Eye operation [Unknown]
  - Intramedullary rod insertion [Unknown]

NARRATIVE: CASE EVENT DATE: 1998
